FAERS Safety Report 6262232-X (Version None)
Quarter: 2009Q3

REPORT INFORMATION
  Report Type: 
  Country: None (occurrence: None)
  Receive Date: 20090702
  Receipt Date: 20090507
  Transmission Date: 20100115
  Serious: No
  Sender: FDA-Public Use
  Company Number: 1000006136

PATIENT
  Age: 81 Year
  Sex: Male

DRUGS (10)
  1. BYSTOLIC [Suspect]
     Indication: HYPERTENSION
     Dosage: 2.5 MG (2.5 MG, 1 IN 1 D), ORAL
     Route: 048
     Dates: start: 20090423
  2. HYALGAN (INJECTION) [Suspect]
     Indication: ARTHRALGIA
     Dosage: INTRA-ARTICULAR
     Route: 014
     Dates: start: 20090501
  3. LASIX [Concomitant]
  4. FLOMAX [Concomitant]
  5. COUMADIN [Concomitant]
  6. GLUCOTROL XL [Concomitant]
  7. LANOXIN [Concomitant]
  8. POTASSIUM CHLORIDE [Concomitant]
  9. ALTACE [Concomitant]
  10. MAGNESIUM OXIDE [Concomitant]

REACTIONS (2)
  - INTERNATIONAL NORMALISED RATIO INCREASED [None]
  - PROTHROMBIN TIME PROLONGED [None]
